FAERS Safety Report 5485942-0 (Version None)
Quarter: 2007Q4

REPORT INFORMATION
  Report Type: 
  Country: None (occurrence: None)
  Receive Date: 20071012
  Receipt Date: 20071008
  Transmission Date: 20080405
  Serious: Yes (Hospitalization, Disabling)
  Sender: FDA-Public Use
  Company Number: AZAFR200700327

PATIENT
  Age: 76 Year
  Sex: Female
  Weight: 62 kg

DRUGS (10)
  1. VIDAZA [Suspect]
     Indication: ACUTE MYELOID LEUKAEMIA
     Dosage: (119 MG, DAILY X 7 DAYS), INTRAVENOUS
     Route: 042
     Dates: start: 20070815, end: 20070821
  2. VALPROIC ACID [Suspect]
     Indication: ACUTE MYELOID LEUKAEMIA
     Dosage: (2000 MG, DAILY), ORAL
     Route: 048
     Dates: start: 20070814, end: 20070820
  3. PROPRANOLOL [Concomitant]
  4. LEVOTHYROXINE SODIUM [Concomitant]
  5. DESLORATADINE [Concomitant]
  6. GINKGO BILOBA (GINKGO BILOBA) [Concomitant]
  7. TRETINOIN [Concomitant]
  8. ONDANSETRON HCL [Concomitant]
  9. DOMPERIDONE (DOMPERIDONE) [Concomitant]
  10. PANTOPRAZOLE SODIUM [Concomitant]

REACTIONS (4)
  - ACINETOBACTER BACTERAEMIA [None]
  - ENCEPHALOPATHY [None]
  - MALIGNANT NEOPLASM PROGRESSION [None]
  - VESSEL PUNCTURE SITE HAEMATOMA [None]
